FAERS Safety Report 5935895-3 (Version None)
Quarter: 2008Q4

REPORT INFORMATION
  Report Type: 
  Country: None (occurrence: None)
  Receive Date: 20081030
  Receipt Date: 20070925
  Transmission Date: 20090506
  Serious: No
  Sender: FDA-Public Use
  Company Number: A0683953A

PATIENT
  Sex: Male

DRUGS (2)
  1. IMITREX [Suspect]
     Indication: MIGRAINE
     Dosage: 6MG SINGLE DOSE
     Route: 058
     Dates: start: 20061201
  2. CORGARD [Concomitant]

REACTIONS (3)
  - DRUG ADMINISTRATION ERROR [None]
  - INJECTION SITE IRRITATION [None]
  - MUSCULOSKELETAL STIFFNESS [None]
